FAERS Safety Report 4554515-6 (Version None)
Quarter: 2005Q1

REPORT INFORMATION
  Report Type: 
  Country: None (occurrence: None)
  Receive Date: 20050114
  Receipt Date: 20030507
  Transmission Date: 20050727
  Serious: Yes (Death, Hospitalization)
  Sender: FDA-Public Use
  Company Number: GXKR2003GB00562

PATIENT
  Age: 76 Year
  Sex: Female

DRUGS (1)
  1. DICLOFENAC (NGX) (DICLOFENAC) UNKNOWN [Suspect]
     Indication: ARTHRALGIA
     Dosage: 100 MG, ORAL
     Route: 048

REACTIONS (3)
  - DRUG INEFFECTIVE [None]
  - LARGE INTESTINE PERFORATION [None]
  - PERITONITIS [None]
